FAERS Safety Report 4779993-9 (Version None)
Quarter: 2005Q3

REPORT INFORMATION
  Report Type: 
  Country: None (occurrence: None)
  Receive Date: 20050927
  Receipt Date: 20050804
  Transmission Date: 20060218
  Serious: Yes (Life-Threatening, Hospitalization)
  Sender: FDA-Public Use
  Company Number: 2005PK01445

PATIENT
  Age: 9275 Day
  Sex: Female
  Weight: 80 kg

DRUGS (1)
  1. SEROQUEL [Suspect]
     Indication: SCHIZOPHRENIA
     Dosage: TOOK 60 TABLETS OF 200 MG
     Route: 048
     Dates: start: 20050728

REACTIONS (5)
  - DRUG EXPOSURE DURING PREGNANCY [None]
  - INTRA-UTERINE DEATH [None]
  - OVERDOSE [None]
  - RESPIRATORY FAILURE [None]
  - STATUS EPILEPTICUS [None]
